FAERS Safety Report 11934618 (Version 1)
Quarter: 2016Q1

REPORT INFORMATION
  Report Type: Spontaneous
  Country: US (occurrence: US)
  Receive Date: 20160121
  Receipt Date: 20160121
  Transmission Date: 20160526
  Serious: No
  Sender: FDA-Public Use
  Company Number: US-ENDO PHARMACEUTICALS INC.-OPCR20150037

PATIENT
  Sex: Male

DRUGS (1)
  1. OPANA ER [Suspect]
     Active Substance: OXYMORPHONE HYDROCHLORIDE
     Indication: PAIN
     Route: 048
     Dates: start: 20141223, end: 2015

REACTIONS (6)
  - Dizziness [Unknown]
  - Headache [Unknown]
  - Feeling hot [Unknown]
  - Drug effect decreased [Unknown]
  - Insomnia [Unknown]
  - Flushing [Unknown]
